FAERS Safety Report 10090036 (Version 2)
Quarter: 2014Q2

REPORT INFORMATION
  Report Type: Spontaneous
  Country: JP (occurrence: JP)
  Receive Date: 20140421
  Receipt Date: 20140428
  Transmission Date: 20141212
  Serious: Yes (Hospitalization, Other)
  Sender: FDA-Public Use
  Company Number: PHHY2014JP047706

PATIENT
  Age: 64 Year
  Sex: Male
  Weight: 82 kg

DRUGS (2)
  1. OCTREOTIDE [Suspect]
     Indication: ACROMEGALY
     Dosage: 200 UG, PER DAY
     Route: 058
  2. BROMOCRIPTINE [Suspect]
     Dosage: 7.5 MG, PER DAY

REACTIONS (7)
  - Pituitary haemorrhage [Unknown]
  - Colon cancer [Unknown]
  - Hypopituitarism [Unknown]
  - Adrenal insufficiency [Unknown]
  - Disease progression [Unknown]
  - Urinary tract infection [Unknown]
  - Drug ineffective [Unknown]
